FAERS Safety Report 21951134 (Version 1)
Quarter: 2023Q1

REPORT INFORMATION
  Report Type: Spontaneous
  Country: FR (occurrence: FR)
  Receive Date: 20230203
  Receipt Date: 20230203
  Transmission Date: 20230417
  Serious: Yes (Other)
  Sender: FDA-Public Use
  Company Number: FR-002147023-NVSC2023FR024439

PATIENT

DRUGS (6)
  1. SPIRONOLACTONE [Suspect]
     Active Substance: SPIRONOLACTONE
     Indication: Product used for unknown indication
     Dosage: 25 MG, QD,ON DAY 0 TO DAY 20
     Route: 065
  2. PERINDOPRIL [Suspect]
     Active Substance: PERINDOPRIL
     Indication: Product used for unknown indication
     Dosage: 8 MG, QD, ON DAY 0 TO DAYJ9
     Route: 065
  3. PERINDOPRIL [Suspect]
     Active Substance: PERINDOPRIL
     Dosage: 8 MG, QD, ON DAY 13 TO DAY20
     Route: 065
  4. IBUPROFEN [Suspect]
     Active Substance: IBUPROFEN
     Indication: Product used for unknown indication
     Dosage: 400 MG, QD, ON DAY 1
     Route: 048
  5. IBUPROFEN [Suspect]
     Active Substance: IBUPROFEN
     Dosage: 800 MG, QD, ON DAY 2 TO DAY6
     Route: 048
  6. IBUPROFEN [Suspect]
     Active Substance: IBUPROFEN
     Dosage: 400 MG, QD,ON DAY 7 AND 8
     Route: 048

REACTIONS (1)
  - Acute kidney injury [Unknown]
